FAERS Safety Report 9570866 (Version 1)
Quarter: 2013Q4

REPORT INFORMATION
  Report Type: Spontaneous
  Country: FR (occurrence: FR)
  Receive Date: 20131001
  Receipt Date: 20131001
  Transmission Date: 20140711
  Serious: Yes (Hospitalization)
  Sender: FDA-Public Use
  Company Number: FR-ASTRAZENECA-2013SE71246

PATIENT
  Age: 60 Year
  Sex: Male

DRUGS (7)
  1. CRESTOR [Suspect]
     Route: 048
     Dates: start: 201304
  2. OMEPRAZOLE [Suspect]
     Route: 048
     Dates: start: 2004
  3. KEPRA [Suspect]
     Route: 048
     Dates: start: 2002
  4. TEGRETOL [Suspect]
     Route: 048
     Dates: start: 1995
  5. RIVOTRIL [Suspect]
     Route: 048
     Dates: start: 2010
  6. UROEC [Suspect]
     Route: 048
     Dates: start: 201205
  7. MESTINON [Suspect]
     Route: 048
     Dates: start: 2010

REACTIONS (1)
  - Toxic skin eruption [Unknown]
